FAERS Safety Report 9670841 (Version 2)
Quarter: 2013Q4

REPORT INFORMATION
  Report Type: Spontaneous
  Country: NO (occurrence: NO)
  Receive Date: 20131106
  Receipt Date: 20131224
  Transmission Date: 20140711
  Serious: Yes (Life-Threatening, Hospitalization, Other)
  Sender: FDA-Public Use
  Company Number: NO-ELI_LILLY_AND_COMPANY-NO201310008714

PATIENT
  Age: 48 Year
  Sex: Male

DRUGS (1)
  1. ZYPADHERA [Suspect]
     Indication: SCHIZOPHRENIA, PARANOID TYPE
     Dosage: 300 MG, 2/M
     Route: 030
     Dates: start: 201210, end: 201310

REACTIONS (9)
  - Loss of consciousness [Recovered/Resolved]
  - Aspiration [Recovered/Resolved]
  - Obstructive airways disorder [Recovered/Resolved]
  - Pneumonia aspiration [Recovered/Resolved]
  - Overdose [Recovered/Resolved]
  - Stupor [Unknown]
  - Fear [Unknown]
  - Hypotension [Recovered/Resolved]
  - Tooth disorder [Unknown]
